FAERS Safety Report 14197419 (Version 2)
Quarter: 2017Q4

REPORT INFORMATION
  Report Type: Spontaneous
  Country: JP (occurrence: JP)
  Receive Date: 20171116
  Receipt Date: 20171130
  Transmission Date: 20180321
  Serious: Yes (Life-Threatening, Other)
  Sender: FDA-Public Use
  Company Number: JP-TAKEDA-2017TEU004683

PATIENT
  Age: 61 Year
  Sex: Male
  Weight: 70.3 kg

DRUGS (34)
  1. SOLACET F [Concomitant]
     Indication: FLUID REPLACEMENT
     Dosage: 300 ML, UNK
     Route: 050
     Dates: start: 20171031, end: 20171031
  2. XYLOCAINE [Concomitant]
     Active Substance: LIDOCAINE HYDROCHLORIDE
     Indication: EPIDURAL ANAESTHESIA
     Dosage: 3 ML, UNK
     Route: 008
     Dates: start: 20171031, end: 20171031
  3. TAGAMET [Concomitant]
     Active Substance: CIMETIDINE
     Dosage: 200 MG, UNK
     Dates: start: 20171031
  4. BRIDION [Concomitant]
     Active Substance: SUGAMMADEX
     Dosage: 200 MG, UNK
     Dates: start: 20171031
  5. DIPRIVAN [Concomitant]
     Active Substance: PROPOFOL
     Indication: GENERAL ANAESTHESIA
     Dosage: UNK
     Route: 050
     Dates: start: 20171031, end: 20171031
  6. ULTIVA [Concomitant]
     Active Substance: REMIFENTANIL HYDROCHLORIDE
     Indication: GENERAL ANAESTHESIA
     Dosage: UNK
     Route: 050
     Dates: start: 20171031, end: 20171031
  7. ANAPEINE [Concomitant]
     Active Substance: ROPIVACAINE HYDROCHLORIDE
     Indication: EPIDURAL ANAESTHESIA
     Dosage: UNK
     Route: 008
     Dates: start: 20171031, end: 20171031
  8. POLARAMINE [Concomitant]
     Active Substance: DEXCHLORPHENIRAMINE MALEATE
     Dosage: 5 MG, UNK
     Dates: start: 20171031
  9. XYLOCAINE                          /00033402/ [Concomitant]
     Active Substance: LIDOCAINE HYDROCHLORIDE
     Dosage: UNK
     Dates: start: 20171031
  10. TACHOSIL [Suspect]
     Active Substance: FIBRINOGEN HUMAN\THROMBIN HUMAN
     Indication: PULMONARY VASCULAR DISORDER
  11. BOSMIN                             /00003901/ [Concomitant]
     Active Substance: EPINEPHRINE
     Dosage: 0.177 MG, UNK
     Dates: start: 20171031
  12. OXYGEN. [Concomitant]
     Active Substance: OXYGEN
     Dosage: UNK
     Dates: start: 20171031
  13. SEISHOKU [Concomitant]
     Active Substance: SODIUM CHLORIDE
     Dosage: UNK
     Dates: start: 20171031
  14. XYLOCAINE                          /00033402/ [Concomitant]
     Active Substance: LIDOCAINE HYDROCHLORIDE
     Dosage: UNK
     Dates: start: 20171031
  15. POPIYODON [Concomitant]
     Dosage: UNK
     Dates: start: 20171031
  16. NEO SYNESIN [Concomitant]
     Active Substance: PHENYLEPHRINE HYDROCHLORIDE
     Indication: GENERAL ANAESTHESIA
     Dosage: 0.1 MG, UNK
     Route: 050
     Dates: start: 20171031, end: 20171031
  17. BICANATE [Concomitant]
     Indication: FLUID REPLACEMENT
     Dosage: 500 ML, UNK
     Route: 050
     Dates: start: 20171031, end: 20171031
  18. LIDOCAINE. [Concomitant]
     Active Substance: LIDOCAINE
     Dosage: 22 ML, UNK
     Dates: start: 20171031
  19. NOREPINEPHRINE. [Concomitant]
     Active Substance: NOREPINEPHRINE
     Dosage: 0.161 MG, UNK
     Dates: start: 20171031, end: 20171102
  20. SEISHOKU [Concomitant]
     Active Substance: SODIUM CHLORIDE
     Dosage: 35.131 ML, UNK
     Dates: start: 20171031
  21. ISOTONIC SODIUM CHLORIDE SOLUTION [Concomitant]
     Active Substance: SODIUM CHLORIDE
     Dosage: UNK
     Dates: start: 20171031
  22. HEPARIN [Concomitant]
     Active Substance: HEPARIN SODIUM
     Dosage: UNK
     Dates: start: 20171031
  23. OXYGEN. [Concomitant]
     Active Substance: OXYGEN
     Dosage: 938 L, UNK
     Dates: start: 20171031
  24. ESLAX [Concomitant]
     Active Substance: ROCURONIUM BROMIDE
     Indication: GENERAL ANAESTHESIA
     Dosage: UNK
     Route: 050
     Dates: start: 20171031, end: 20171031
  25. CEFAZOLIN NA [Concomitant]
     Active Substance: CEFAZOLIN SODIUM
     Indication: PROPHYLAXIS
     Dosage: 1 G/100 ML, UNK
     Route: 050
     Dates: start: 20171031, end: 20171102
  26. XYLOCAINE [Concomitant]
     Active Substance: LIDOCAINE HYDROCHLORIDE
     Dosage: 5 ML, UNK
     Dates: start: 20171031
  27. WHITE PETROLATUM [Concomitant]
     Active Substance: PETROLATUM
     Dosage: UNK
     Dates: start: 20171031
  28. TACHOSIL [Suspect]
     Active Substance: FIBRINOGEN HUMAN\THROMBIN HUMAN
     Indication: FISTULA REPAIR
     Dosage: UNK
     Route: 033
     Dates: start: 20171031, end: 20171031
  29. FENTANYL                           /00174602/ [Concomitant]
     Active Substance: FENTANYL
     Indication: GENERAL ANAESTHESIA
     Dosage: 0.1 MG, UNK
     Route: 050
     Dates: start: 20171031, end: 20171031
  30. DEXART [Concomitant]
     Active Substance: DEXAMETHASONE SODIUM PHOSPHATE
     Dosage: 6.5 MG, UNK
     Dates: start: 20171031
  31. VOLUVEN [Concomitant]
     Active Substance: HYDROXYETHYL STARCH 130/0.4
     Dosage: 500 ML, UNK
     Dates: start: 20171031
  32. MORPHINE HYDROCHLORIDE [Concomitant]
     Active Substance: MORPHINE HYDROCHLORIDE
     Dosage: 2 MG, UNK
     Dates: start: 20171031
  33. DISTILLED WATER [Concomitant]
     Dosage: UNK
     Dates: start: 20171031
  34. HEPARIN [Concomitant]
     Active Substance: HEPARIN SODIUM
     Dosage: UNK
     Dates: start: 20171031

REACTIONS (3)
  - Anaphylactic shock [Recovered/Resolved]
  - Flushing [Recovered/Resolved]
  - Blood pressure decreased [Recovered/Resolved]

NARRATIVE: CASE EVENT DATE: 20171031
